FAERS Safety Report 13923204 (Version 1)
Quarter: 2017Q3

REPORT INFORMATION
  Report Type: Spontaneous
  Country: US (occurrence: US)
  Receive Date: 20170831
  Receipt Date: 20170831
  Transmission Date: 20171127
  Serious: No
  Sender: FDA-Public Use
  Company Number: US-ASTRAZENECA-2017SE86620

PATIENT
  Sex: Female

DRUGS (3)
  1. SEROQUEL [Suspect]
     Active Substance: QUETIAPINE FUMARATE
     Route: 048
  2. LUNESTA [Concomitant]
     Active Substance: ESZOPICLONE
  3. XANAX [Concomitant]
     Active Substance: ALPRAZOLAM

REACTIONS (3)
  - Anxiety [Unknown]
  - Sleep disorder [Unknown]
  - Loss of consciousness [Unknown]
